FAERS Safety Report 9294965 (Version 1)
Quarter: 2013Q2

REPORT INFORMATION
  Report Type: Spontaneous
  Country: FR (occurrence: FR)
  Receive Date: 20130517
  Receipt Date: 20130517
  Transmission Date: 20140414
  Serious: Yes (Hospitalization)
  Sender: FDA-Public Use
  Company Number: FR-009507513-1305FRA008115

PATIENT
  Age: 89 Year
  Sex: Male

DRUGS (15)
  1. PROGLICEM [Suspect]
     Indication: HYPOGLYCAEMIA
     Dosage: 100 MG, BID
     Route: 048
     Dates: start: 201301
  2. PROGLICEM [Suspect]
     Dosage: 25 MG, BID
     Route: 048
     Dates: start: 20130212
  3. BISOCOR [Concomitant]
     Dosage: 1.25 MG, QD
  4. KARDEGIC [Concomitant]
     Dosage: 75 MG, QD
  5. TAHOR [Concomitant]
     Dosage: 40 MG, QD
  6. INEXIUM [Concomitant]
     Dosage: 40 MG, QD
  7. LASILIX [Concomitant]
     Dosage: 40 MG, QD
  8. URSOLVAN [Concomitant]
     Dosage: 100 MG, QD
  9. CORDARONE [Concomitant]
     Dosage: 100 MG, QD
  10. SEROPLEX [Concomitant]
     Dosage: 10 MG, QD
  11. TRIATEC (RAMIPRIL) [Concomitant]
     Dosage: 2.5 MG, QD
  12. DEXERYL CREAM [Concomitant]
  13. COUMADIN [Concomitant]
     Dosage: UNK
  14. VITABACT [Concomitant]
  15. ALPRAZOLAM [Concomitant]
     Dosage: 0.25 MG, QD

REACTIONS (1)
  - Hyperglycaemia [Recovered/Resolved]
